FAERS Safety Report 24645366 (Version 1)
Quarter: 2024Q4

REPORT INFORMATION
  Report Type: Spontaneous
  Country: US (occurrence: US)
  Receive Date: 20241121
  Receipt Date: 20241121
  Transmission Date: 20250115
  Serious: No
  Sender: ELI LILLY AND COMPANY
  Company Number: US-ELI_LILLY_AND_COMPANY-US202411012774

PATIENT
  Age: 61 Year
  Sex: Female

DRUGS (2)
  1. TIRZEPATIDE [Suspect]
     Active Substance: TIRZEPATIDE
     Indication: Weight control
     Dosage: 15 MG, WEEKLY (1/W)
     Route: 058
     Dates: start: 202408
  2. TIRZEPATIDE [Suspect]
     Active Substance: TIRZEPATIDE
     Dosage: 15 MG, WEEKLY (1/W)
     Route: 058
     Dates: start: 202410

REACTIONS (3)
  - Product tampering [Unknown]
  - Viral infection [Unknown]
  - Diarrhoea [Recovered/Resolved]

NARRATIVE: CASE EVENT DATE: 20240101
